FAERS Safety Report 11650352 (Version 1)
Quarter: 2015Q4

REPORT INFORMATION
  Report Type: Spontaneous
  Country: US (occurrence: US)
  Receive Date: 20151021
  Receipt Date: 20151021
  Transmission Date: 20160304
  Serious: No
  Sender: FDA-Public Use
  Company Number: US-MARKSANS PHARMA LIMITED-1043255

PATIENT
  Age: 70 Year
  Sex: Female
  Weight: 68.18 kg

DRUGS (1)
  1. IBUPROFEN. [Suspect]
     Active Substance: IBUPROFEN
     Indication: SCIATICA
     Route: 048
     Dates: start: 20150929

REACTIONS (2)
  - Restlessness [Recovered/Resolved]
  - Insomnia [Recovered/Resolved]
